FAERS Safety Report 12400068 (Version 1)
Quarter: 2016Q2

REPORT INFORMATION
  Report Type: Spontaneous
  Country: US (occurrence: US)
  Receive Date: 20160524
  Receipt Date: 20160524
  Transmission Date: 20160815
  Serious: Yes (Death, Hospitalization, Disabling, Other)
  Sender: FDA-Public Use
  Company Number: US-FRI-1000084848

PATIENT
  Age: 63 Year
  Sex: Female
  Weight: 59.09 kg

DRUGS (3)
  1. MUCINEX [Concomitant]
     Active Substance: GUAIFENESIN
     Indication: ILL-DEFINED DISORDER
     Route: 048
  2. BYSTOLIC [Suspect]
     Active Substance: NEBIVOLOL HYDROCHLORIDE
     Indication: HYPERTENSION
     Route: 048
     Dates: end: 20160516
  3. ZOLPIDEM [Concomitant]
     Active Substance: ZOLPIDEM\ZOLPIDEM TARTRATE
     Indication: SLEEP DISORDER
     Route: 048

REACTIONS (11)
  - Non-small cell lung cancer [Not Recovered/Not Resolved]
  - Hemiplegia [Not Recovered/Not Resolved]
  - Rotator cuff syndrome [Unknown]
  - Pneumonia [Not Recovered/Not Resolved]
  - Myocardial infarction [Fatal]
  - Haemoptysis [Unknown]
  - Rib fracture [Unknown]
  - Pain [Unknown]
  - Fall [Not Recovered/Not Resolved]
  - Upper limb fracture [Unknown]
  - Dyspnoea [Unknown]

NARRATIVE: CASE EVENT DATE: 2014
